FAERS Safety Report 7760371-5 (Version None)
Quarter: 2011Q3

REPORT INFORMATION
  Report Type: 
  Country: None (occurrence: None)
  Receive Date: 20110919
  Receipt Date: 20110909
  Transmission Date: 20111222
  Serious: Yes (Other)
  Sender: FDA-Public Use
  Company Number: PHEH2011US03792

PATIENT
  Sex: Female

DRUGS (1)
  1. RECLAST [Suspect]
     Dosage: UNK
     Route: 042
     Dates: start: 20100527

REACTIONS (10)
  - OSTEONECROSIS OF JAW [None]
  - EXPOSED BONE IN JAW [None]
  - BONE PAIN [None]
  - GASTRITIS [None]
  - ATRIAL FIBRILLATION [None]
  - INFLUENZA [None]
  - IMPAIRED GASTRIC EMPTYING [None]
  - EXOSTOSIS [None]
  - PNEUMONIA [None]
  - INFECTION [None]
